FAERS Safety Report 4507118-3 (Version None)
Quarter: 2004Q4

REPORT INFORMATION
  Report Type: 
  Country: None (occurrence: None)
  Receive Date: 20041118
  Receipt Date: 20041101
  Transmission Date: 20050328
  Serious: Yes (Death)
  Sender: FDA-Public Use
  Company Number: B0349848A

PATIENT
  Age: 58 Year

DRUGS (3)
  1. LITHIUM SALT (FORMULATION UNKNOWN) (LITHIUM SALT) [Suspect]
     Dosage: ORAL
     Route: 048
  2. NORTRIPTYLINE HCL [Suspect]
     Dosage: ORAL
     Route: 048
  3. CITALOPRAM [Suspect]
     Dosage: ORAL
     Route: 048

REACTIONS (3)
  - ANTIPSYCHOTIC DRUG LEVEL ABOVE THERAPEUTIC [None]
  - COMPLETED SUICIDE [None]
  - DRUG SCREEN POSITIVE [None]
